FAERS Safety Report 9070944 (Version 1)
Quarter: 2013Q1

REPORT INFORMATION
  Report Type: Spontaneous
  Country: None (occurrence: US)
  Receive Date: 20130206
  Receipt Date: 20130206
  Transmission Date: 20140127
  Serious: No
  Sender: FDA-Public Use
  Company Number: US-ALLERGAN-1207155US

PATIENT
  Age: 77 Year
  Sex: Female

DRUGS (2)
  1. RESTASIS? [Suspect]
     Indication: DRY EYE
     Dosage: 2 GTT, BID
     Route: 047
     Dates: start: 201205, end: 201205
  2. ARTIFICIAL TEARS                   /00445101/ [Concomitant]
     Indication: DRY EYE

REACTIONS (2)
  - Ear pain [Unknown]
  - Eye pruritus [Unknown]
